FAERS Safety Report 16527499 (Version 1)
Quarter: 2019Q3

REPORT INFORMATION
  Report Type: Spontaneous
  Country: US (occurrence: US)
  Receive Date: 20190703
  Receipt Date: 20190703
  Transmission Date: 20191004
  Serious: Yes (Other)
  Sender: FDA-Public Use
  Company Number: US-SA-2019SA174504

PATIENT
  Age: 54 Year
  Sex: Female
  Weight: 75 kg

DRUGS (12)
  1. TEGRETAL [Concomitant]
     Active Substance: CARBAMAZEPINE
     Dosage: UNK
  2. GEODON [ZIPRASIDONE HYDROCHLORIDE] [Concomitant]
     Dosage: UNK
  3. NEOSAR [Concomitant]
     Active Substance: CYCLOPHOSPHAMIDE
  4. TAXOTERE [Suspect]
     Active Substance: DOCETAXEL
     Dosage: 135MG - 140 MG
     Route: 042
     Dates: start: 20110221, end: 20110221
  5. ZOFRAN [Concomitant]
     Active Substance: ONDANSETRON HYDROCHLORIDE
  6. BENADRYL [Concomitant]
     Active Substance: DIPHENHYDRAMINE HYDROCHLORIDE
  7. ANZEMET [Concomitant]
     Active Substance: DOLASETRON MESYLATE
  8. ZANTAC [Concomitant]
     Active Substance: RANITIDINE HYDROCHLORIDE
  9. LEUKINE [Concomitant]
     Active Substance: SARGRAMOSTIM
  10. TAXOTERE [Suspect]
     Active Substance: DOCETAXEL
     Indication: BREAST CANCER FEMALE
     Dosage: 135MG - 140 MG
     Route: 042
     Dates: start: 20101220, end: 20101220
  11. CYTOXAN [Concomitant]
     Active Substance: CYCLOPHOSPHAMIDE
  12. VERAPAMIL [Concomitant]
     Active Substance: VERAPAMIL HYDROCHLORIDE
     Dosage: UNK

REACTIONS (2)
  - Alopecia [Recovering/Resolving]
  - Psychological trauma [Unknown]

NARRATIVE: CASE EVENT DATE: 20110821
